FAERS Safety Report 21411125 (Version 3)
Quarter: 2022Q4

REPORT INFORMATION
  Report Type: Spontaneous
  Country: CA (occurrence: CA)
  Receive Date: 20221005
  Receipt Date: 20221121
  Transmission Date: 20230113
  Serious: Yes (Other)
  Sender: FDA-Public Use
  Company Number: CA-PFIZER INC-202201197231

PATIENT
  Age: 64 Year
  Sex: Female

DRUGS (1)
  1. ABRILADA [Suspect]
     Active Substance: ADALIMUMAB-AFZB
     Indication: Crohn^s disease
     Dosage: 40 MG, EVERY 2 WEEKS (PREFILLED PEN)
     Route: 058
     Dates: start: 20220603

REACTIONS (5)
  - Fracture [Unknown]
  - Fall [Recovered/Resolved]
  - Wrist fracture [Unknown]
  - Ankle fracture [Unknown]
  - Tibia fracture [Unknown]

NARRATIVE: CASE EVENT DATE: 20220925
